FAERS Safety Report 6048257-8 (Version None)
Quarter: 2009Q1

REPORT INFORMATION
  Report Type: 
  Country: None (occurrence: None)
  Receive Date: 20090123
  Receipt Date: 20090116
  Transmission Date: 20090719
  Serious: Yes (Hospitalization)
  Sender: FDA-Public Use
  Company Number: JP-JNJFOC-20090101464

PATIENT
  Sex: Female

DRUGS (2)
  1. CRAVIT [Suspect]
     Route: 048
  2. CRAVIT [Suspect]
     Indication: URINARY TRACT INFECTION
     Route: 048

REACTIONS (1)
  - PEMPHIGOID [None]
